FAERS Safety Report 7001796-5 (Version None)
Quarter: 2010Q3

REPORT INFORMATION
  Report Type: 
  Country: None (occurrence: None)
  Receive Date: 20100920
  Receipt Date: 20100331
  Transmission Date: 20110219
  Serious: Yes (Hospitalization)
  Sender: FDA-Public Use
  Company Number: US-ASTRAZENECA-2009SE17953

PATIENT
  Age: 593 Month
  Sex: Male
  Weight: 108 kg

DRUGS (6)
  1. SEROQUEL [Suspect]
     Route: 048
     Dates: start: 20060101
  2. ZESTRIL [Concomitant]
  3. IMDUR [Concomitant]
  4. TOPROL-XL [Concomitant]
  5. KLONOPIN [Concomitant]
  6. ELAVIL [Concomitant]

REACTIONS (3)
  - BLOOD GLUCOSE INCREASED [None]
  - DIABETES MELLITUS INADEQUATE CONTROL [None]
  - TYPE 2 DIABETES MELLITUS [None]
